FAERS Safety Report 17179137 (Version 2)
Quarter: 2020Q1

REPORT INFORMATION
  Report Type: Spontaneous
  Country: FR (occurrence: FR)
  Receive Date: 20191219
  Receipt Date: 20200219
  Transmission Date: 20200409
  Serious: Yes (Hospitalization)
  Sender: FDA-Public Use
  Company Number: FR-MYLANLABS-2019M1125539

PATIENT
  Age: 31 Year
  Sex: Female
  Weight: 93.4 kg

DRUGS (12)
  1. CYCLOPHOSPHAMIDE. [Suspect]
     Active Substance: CYCLOPHOSPHAMIDE
     Indication: B-CELL LYMPHOMA
     Dosage: 1500 MILLIGRAM, Q2W
     Route: 042
     Dates: start: 20190605, end: 20190715
  2. VINCRISTINE                        /00078802/ [Suspect]
     Active Substance: VINCRISTINE
     Indication: B-CELL LYMPHOMA
     Dosage: 2 MILLIGRAM, Q2W
     Route: 042
     Dates: start: 20190606, end: 201907
  3. VINCRISTINE                        /00078802/ [Suspect]
     Active Substance: VINCRISTINE
     Dosage: 2 MILLIGRAM, BIWEEKLY
     Route: 042
     Dates: start: 20190605, end: 20190715
  4. BACTRIM [Concomitant]
     Active Substance: SULFAMETHOXAZOLE\TRIMETHOPRIM
     Indication: OPPORTUNISTIC INFECTION PROPHYLAXIS
     Dosage: 3 DOSAGE FORM, QW
     Route: 048
     Dates: start: 20190605, end: 20190729
  5. FOLINATE CALCIUM [Concomitant]
     Active Substance: LEUCOVORIN CALCIUM
     Indication: VITAMIN SUPPLEMENTATION
     Dosage: 25 MILLIGRAM, QW
     Route: 048
     Dates: start: 20190605, end: 201907
  6. RITUXIMAB. [Suspect]
     Active Substance: RITUXIMAB
     Indication: B-CELL LYMPHOMA
     Dosage: 700 MILLIGRAM, Q2W
     Route: 042
     Dates: start: 20190605, end: 20190729
  7. OMEPRAZOLE. [Concomitant]
     Active Substance: OMEPRAZOLE
     Indication: PROPHYLAXIS AGAINST GASTROINTESTINAL ULCER
     Dosage: 20 MILLIGRAM, QD
     Route: 048
     Dates: start: 20190715, end: 20190729
  8. DOXORUBICINE                       /00330901/ [Suspect]
     Active Substance: DOXORUBICIN
     Indication: B-CELL LYMPHOMA
     Dosage: 1000 MILLIGRAM, Q2W
     Route: 042
     Dates: start: 20190605, end: 20190715
  9. MESNA. [Concomitant]
     Active Substance: MESNA
     Indication: PROPHYLAXIS
     Dosage: 1500 MILLIGRAM, Q2W
     Route: 042
     Dates: start: 20190606, end: 201907
  10. VALACICLOVIR [Concomitant]
     Active Substance: VALACYCLOVIR HYDROCHLORIDE
     Indication: ANTIVIRAL PROPHYLAXIS
     Dosage: 1000 MILLIGRAM, QD
     Route: 048
     Dates: start: 20190605, end: 20190729
  11. PREDNISONE. [Suspect]
     Active Substance: PREDNISONE
     Indication: B-CELL LYMPHOMA
     Dosage: 400 MILLIGRAM, Q2W
     Route: 048
     Dates: start: 20190605, end: 201907
  12. FILGRASTIM [Concomitant]
     Active Substance: FILGRASTIM
     Indication: COLONY STIMULATING FACTOR THERAPY
     Dosage: 240 MEGA-INTERNATIONAL UNIT, Q2W
     Route: 058
     Dates: start: 20190610, end: 201907

REACTIONS (2)
  - Hepatitis E [Not Recovered/Not Resolved]
  - Hepatocellular injury [Not Recovered/Not Resolved]

NARRATIVE: CASE EVENT DATE: 20190727
